FAERS Safety Report 4733421-8 (Version None)
Quarter: 2005Q3

REPORT INFORMATION
  Report Type: 
  Country: None (occurrence: None)
  Receive Date: 20050725
  Receipt Date: 20040909
  Transmission Date: 20060218
  Serious: Yes (Other)
  Sender: FDA-Public Use
  Company Number: KII-1999-0004557

PATIENT
  Age: 34 Year

DRUGS (2)
  1. MS CONTIN [Suspect]
     Dosage: 160 MG, Q12H
  2. TORADOL [Concomitant]

REACTIONS (2)
  - DRUG DEPENDENCE [None]
  - MEDICATION ERROR [None]
